FAERS Safety Report 10501357 (Version 1)
Quarter: 2014Q4

REPORT INFORMATION
  Report Type: Spontaneous
  Country: PT (occurrence: PT)
  Receive Date: 20141007
  Receipt Date: 20141007
  Transmission Date: 20150528
  Serious: Yes (Death)
  Sender: FDA-Public Use
  Company Number: PT-JNJFOC-20141001654

PATIENT
  Age: 44 Year
  Sex: Female

DRUGS (9)
  1. TRITICUM AESTIVUM POLLEN. [Suspect]
     Active Substance: TRITICUM AESTIVUM POLLEN
     Indication: DEPRESSION
     Route: 048
  2. TOPIRAMATE. [Suspect]
     Active Substance: TOPIRAMATE
     Indication: PRODUCT USED FOR UNKNOWN INDICATION
     Route: 048
  3. TRITICUM AESTIVUM POLLEN. [Suspect]
     Active Substance: TRITICUM AESTIVUM POLLEN
     Indication: DEPRESSION
     Route: 048
  4. TRITICUM AESTIVUM POLLEN. [Suspect]
     Active Substance: TRITICUM AESTIVUM POLLEN
     Indication: DEPRESSION
     Route: 048
  5. TRITICUM AESTIVUM POLLEN. [Suspect]
     Active Substance: TRITICUM AESTIVUM POLLEN
     Indication: DEPRESSION
     Route: 048
  6. TRITICUM AESTIVUM POLLEN. [Suspect]
     Active Substance: TRITICUM AESTIVUM POLLEN
     Indication: DEPRESSION
     Route: 048
  7. ABILIFY [Suspect]
     Active Substance: ARIPIPRAZOLE
     Indication: PRODUCT USED FOR UNKNOWN INDICATION
     Dosage: THERAPY DURATION - 1 MONTH
     Route: 048
  8. QUETIAPINE [Suspect]
     Active Substance: QUETIAPINE
     Indication: INSOMNIA
     Route: 065
  9. TRITICUM AESTIVUM POLLEN. [Suspect]
     Active Substance: TRITICUM AESTIVUM POLLEN
     Indication: DEPRESSION
     Dosage: 600 MG TO 900 MG
     Route: 048

REACTIONS (2)
  - Overdose [Fatal]
  - Death [Fatal]
